FAERS Safety Report 6237443-X (Version None)
Quarter: 2009Q2

REPORT INFORMATION
  Report Type: 
  Country: None (occurrence: None)
  Receive Date: 20090619
  Receipt Date: 20090609
  Transmission Date: 20091009
  Serious: Yes (Other)
  Sender: FDA-Public Use
  Company Number: GB-AMGEN-US351543

PATIENT
  Age: 61 Year
  Sex: Female
  Weight: 50 kg

DRUGS (7)
  1. ENBREL [Suspect]
     Indication: RHEUMATOID ARTHRITIS
     Dates: start: 20080601
  2. ALBUTEROL [Concomitant]
     Dosage: UNKNOWN
     Route: 055
  3. DICLOFENAC [Concomitant]
     Dosage: UNKNOWN
  4. ALENDRONATE SODIUM [Concomitant]
     Dosage: UNKNOWN
  5. LEFLUNOMIDE [Concomitant]
     Dosage: UNKNOWN
  6. ACETAMINOPHEN W/ CODEINE [Concomitant]
     Dosage: UNKNOWN
  7. UNSPECIFIED INHALER [Concomitant]
     Route: 055

REACTIONS (2)
  - BLOOD CREATININE INCREASED [None]
  - NEPHRITIS [None]
